FAERS Safety Report 5916865-8 (Version None)
Quarter: 2008Q4

REPORT INFORMATION
  Report Type: 
  Country: None (occurrence: None)
  Receive Date: 20081013
  Receipt Date: 20080923
  Transmission Date: 20090506
  Serious: Yes (Other)
  Sender: FDA-Public Use
  Company Number: CA-ROCHE-587121

PATIENT
  Age: 11 Month
  Sex: Male
  Weight: 15.9 kg

DRUGS (21)
  1. MYCOPHENOLATE MOFETIL [Suspect]
     Indication: NEPHROTIC SYNDROME
     Route: 065
  2. CYCLOSPORINE [Suspect]
     Indication: NEPHROTIC SYNDROME
     Route: 065
  3. CYCLOSPORINE [Suspect]
     Dosage: 400 NG/ML
     Route: 065
  4. DEXAMETHASONE [Concomitant]
  5. PREDNISONE [Concomitant]
     Indication: NEPHROTIC SYNDROME
     Dosage: IN THREE DIVIDED DOSES
     Route: 048
  6. FUROSEMIDE [Concomitant]
     Indication: NEPHROTIC SYNDROME
  7. HYDROCHLOROTHIAZIDE [Concomitant]
     Indication: NEPHROTIC SYNDROME
  8. HYDROCHLOROTHIAZIDE [Concomitant]
  9. SPIRONOLACTONE [Concomitant]
     Indication: NEPHROTIC SYNDROME
  10. SPIRONOLACTONE [Concomitant]
  11. PENICILLIN V [Concomitant]
     Indication: NEPHROTIC SYNDROME
  12. ALBUMIN (HUMAN) [Concomitant]
     Indication: NEPHROTIC SYNDROME
     Dosage: 3.0000 G/KG DAILY
  13. LOSARTAN [Concomitant]
     Indication: HYPERTENSION
  14. RAMIPRIL [Concomitant]
     Indication: HYPERTENSION
  15. AMLODIPINE [Concomitant]
     Indication: HYPERTENSION
  16. MINOXIDIL [Concomitant]
     Indication: HYPERTENSION
  17. LABETALOL HCL [Concomitant]
     Indication: HYPERTENSION
  18. LABETALOL HCL [Concomitant]
  19. NIFEDIPINE [Concomitant]
  20. ENOXAPARIN SODIUM [Concomitant]
     Indication: PROPHYLAXIS
     Route: 058
  21. IMMUNE GLOBULIN INTRAVENOUS (HUMAN) [Concomitant]
     Indication: NEPHROTIC SYNDROME
     Dosage: 1 G/KG/DOSE TWICE WEEKLY

REACTIONS (2)
  - PROTEINURIA [None]
  - PULMONARY EMBOLISM [None]
